FAERS Safety Report 18031825 (Version 1)
Quarter: 2020Q3

REPORT INFORMATION
  Report Type: Spontaneous
  Country: FR (occurrence: FR)
  Receive Date: 20200716
  Receipt Date: 20200716
  Transmission Date: 20201103
  Serious: Yes (Life-Threatening, Hospitalization)
  Sender: FDA-Public Use
  Company Number: NVSC2020FR198130

PATIENT
  Age: 69 Year
  Sex: Female
  Weight: 45 kg

DRUGS (3)
  1. ZOPHREN 2 MG/ML, SOLUTION INJECTABLE EN AMPOULE (I.V.) [Suspect]
     Active Substance: ONDANSETRON
     Indication: PREMEDICATION
     Dosage: 8 MG, ONCE/SINGLE
     Route: 042
     Dates: start: 20200217, end: 20200217
  2. MESNA EG [Suspect]
     Active Substance: MESNA
     Indication: PROPHYLAXIS
     Dosage: 840 MG, ONCE/SINGLE
     Route: 042
     Dates: start: 20200217, end: 20200217
  3. ENDOXAN [Suspect]
     Active Substance: CYCLOPHOSPHAMIDE
     Indication: ANTISYNTHETASE SYNDROME
     Dosage: 840 MG, ONCE/SINGLE
     Route: 042
     Dates: start: 20200217, end: 20200217

REACTIONS (4)
  - Acute kidney injury [Recovered/Resolved]
  - Generalised oedema [Recovered/Resolved]
  - Hypotension [Recovered/Resolved]
  - Acute respiratory distress syndrome [Recovered/Resolved with Sequelae]

NARRATIVE: CASE EVENT DATE: 20200218
